FAERS Safety Report 10662174 (Version 1)
Quarter: 2014Q4

REPORT INFORMATION
  Report Type: Spontaneous
  Country: FR (occurrence: FR)
  Receive Date: 20141218
  Receipt Date: 20141218
  Transmission Date: 20150529
  Serious: Yes (Death)
  Sender: FDA-Public Use
  Company Number: FR-SA-2014SA171092

PATIENT
  Age: 83 Year
  Sex: Female
  Weight: 51.5 kg

DRUGS (1)
  1. CEREZYME [Suspect]
     Active Substance: IMIGLUCERASE
     Indication: GAUCHER^S DISEASE
     Dosage: DOSE:60 UNIT(S)/KILOGRAM BODYWEIGHT
     Route: 042
     Dates: end: 201008

REACTIONS (3)
  - Skin lesion [Fatal]
  - General physical health deterioration [Unknown]
  - Lymphadenopathy [Fatal]

NARRATIVE: CASE EVENT DATE: 20101028
